FAERS Safety Report 23260190 (Version 4)
Quarter: 2024Q1

REPORT INFORMATION
  Report Type: Report from Study
  Country: US (occurrence: US)
  Receive Date: 20231204
  Receipt Date: 20240101
  Transmission Date: 20240410
  Serious: Yes (Hospitalization, Other)
  Sender: FDA-Public Use
  Company Number: US-ABBVIE-5518501

PATIENT
  Sex: Male

DRUGS (2)
  1. MAVYRET [Suspect]
     Active Substance: GLECAPREVIR\PIBRENTASVIR
     Indication: Hepatitis C
     Dosage: FORM STRENGTH 140MG, FREQUENCY TEXT: 3 PILLS ONCE DAILY
     Route: 048
     Dates: start: 20231001, end: 20231121
  2. MAVYRET [Suspect]
     Active Substance: GLECAPREVIR\PIBRENTASVIR
     Indication: Hepatitis C
     Dosage: FIRST ADMIN DATE: 2023, FORM STRENGTH 140MG
     Route: 048

REACTIONS (1)
  - Spinal deformity [Recovering/Resolving]

NARRATIVE: CASE EVENT DATE: 20230101
